FAERS Safety Report 6050967-3 (Version None)
Quarter: 2009Q1

REPORT INFORMATION
  Report Type: 
  Country: None (occurrence: None)
  Receive Date: 20090121
  Receipt Date: 20090105
  Transmission Date: 20090719
  Serious: Yes (Death, Hospitalization)
  Sender: FDA-Public Use
  Company Number: MPS1-1000107

PATIENT
  Age: 23 Month
  Sex: Male

DRUGS (2)
  1. ALDURAZYME [Suspect]
     Indication: MUCOPOLYSACCHARIDOSIS I
     Dosage: 5.8 MG
  2. LORATADINE (LORATADINE, PSEUDOEPHEDRINE SULFATE) [Concomitant]

REACTIONS (2)
  - BRONCHOPNEUMONIA [None]
  - SINUSITIS [None]
